FAERS Safety Report 7768174-2 (Version None)
Quarter: 2011Q3

REPORT INFORMATION
  Report Type: 
  Country: None (occurrence: None)
  Receive Date: 20110922
  Receipt Date: 20110922
  Transmission Date: 20111222
  Serious: No
  Sender: FDA-Public Use
  Company Number: None

PATIENT
  Sex: Female

DRUGS (2)
  1. STEROIDS [Concomitant]
     Indication: PSORIASIS
  2. XOLAIR [Suspect]

REACTIONS (1)
  - PSORIASIS [None]
